FAERS Safety Report 18536018 (Version 1)
Quarter: 2020Q4

REPORT INFORMATION
  Report Type: Spontaneous
  Country: JP (occurrence: JP)
  Receive Date: 20201124
  Receipt Date: 20201124
  Transmission Date: 20210114
  Serious: Yes (Death, Other)
  Sender: FDA-Public Use
  Company Number: JP-ASTELLAS-2020JP016936

PATIENT
  Age: 4 Decade
  Sex: Female

DRUGS (4)
  1. PROGRAF [Suspect]
     Active Substance: TACROLIMUS
     Dosage: UNK UNK, TWICE DAILY
     Route: 065
  2. MYCOPHENOLATE MOFETIL. [Concomitant]
     Active Substance: MYCOPHENOLATE MOFETIL
     Indication: LIVER TRANSPLANT REJECTION
     Dosage: UNK UNK, UNKNOWN FREQ.
     Route: 065
  3. GRACEPTOR [Suspect]
     Active Substance: TACROLIMUS
     Indication: LIVER TRANSPLANT REJECTION
     Dosage: 0.5 MG/DAY, UNKNOWN FREQ.
     Route: 065
  4. PROGRAF [Suspect]
     Active Substance: TACROLIMUS
     Indication: PRODUCT USED FOR UNKNOWN INDICATION
     Dosage: UNK UNK, UNKNOWN FREQ.
     Route: 065

REACTIONS (10)
  - Ascites [Unknown]
  - Peritonitis [Unknown]
  - Vanishing bile duct syndrome [Unknown]
  - Congestive hepatopathy [Unknown]
  - Hepatic fibrosis [Unknown]
  - Platelet count decreased [Unknown]
  - Sepsis [Fatal]
  - Liver transplant rejection [Unknown]
  - Splenomegaly [Unknown]
  - Blood albumin decreased [Unknown]
